FAERS Safety Report 6835149-7 (Version None)
Quarter: 2010Q3

REPORT INFORMATION
  Report Type: 
  Country: None (occurrence: None)
  Receive Date: 20100713
  Receipt Date: 20100702
  Transmission Date: 20110219
  Serious: No
  Sender: FDA-Public Use
  Company Number: US-BIOGENIDEC-2010BI023011

PATIENT
  Sex: Female

DRUGS (1)
  1. TYSABRI [Suspect]
     Indication: MULTIPLE SCLEROSIS
     Route: 042
     Dates: start: 20090407

REACTIONS (5)
  - FUNGAL INFECTION [None]
  - MICTURITION URGENCY [None]
  - MULTIPLE SCLEROSIS [None]
  - TOOTHACHE [None]
  - URINARY TRACT INFECTION [None]
